FAERS Safety Report 19037510 (Version 1)
Quarter: 2021Q1

REPORT INFORMATION
  Report Type: Spontaneous
  Country: US (occurrence: US)
  Receive Date: 20210322
  Receipt Date: 20210322
  Transmission Date: 20210420
  Serious: Yes (Other)
  Sender: FDA-Public Use
  Company Number: US-BAYER-2021-108775

PATIENT
  Age: 29 Year
  Sex: Female

DRUGS (1)
  1. MIRENA [Suspect]
     Active Substance: LEVONORGESTREL
     Indication: CONTRACEPTION
     Dosage: 20  ?G PER DAY CON20  ?G PER DAY CON
     Route: 015
     Dates: start: 20201211, end: 20210122

REACTIONS (2)
  - Medical device discomfort [None]
  - Genital haemorrhage [None]
